FAERS Safety Report 22303757 (Version 2)
Quarter: 2023Q2

REPORT INFORMATION
  Report Type: Spontaneous
  Country: CO (occurrence: CO)
  Receive Date: 20230510
  Receipt Date: 20230612
  Transmission Date: 20230722
  Serious: Yes (Other)
  Sender: FDA-Public Use
  Company Number: CO-PFIZER INC-PV202300081575

PATIENT
  Sex: Female

DRUGS (2)
  1. PALBOCICLIB [Suspect]
     Active Substance: PALBOCICLIB
     Indication: Breast cancer metastatic
     Dosage: 125 MG
     Route: 048
     Dates: start: 202212
  2. LETROZOLE [Concomitant]
     Active Substance: LETROZOLE

REACTIONS (9)
  - Pain [Unknown]
  - Malaise [Unknown]
  - Bacterial disease carrier [Unknown]
  - Headache [Unknown]
  - Dizziness [Unknown]
  - Neoplasm progression [Unknown]
  - Decreased immune responsiveness [Unknown]
  - Discomfort [Unknown]
  - Stomatitis [Unknown]
